FAERS Safety Report 7338402-6 (Version None)
Quarter: 2011Q1

REPORT INFORMATION
  Report Type: 
  Country: None (occurrence: None)
  Receive Date: 20110308
  Receipt Date: 20110302
  Transmission Date: 20110831
  Serious: Yes (Hospitalization)
  Sender: FDA-Public Use
  Company Number: US-ABBOTT-11P-163-0708540-00

PATIENT
  Sex: Female
  Weight: 95.34 kg

DRUGS (13)
  1. AMLODIPINE [Concomitant]
     Indication: HYPERTENSION
  2. CELEBREX [Concomitant]
     Indication: RHEUMATOID ARTHRITIS
  3. FLUOXETINE [Concomitant]
     Indication: DEPRESSION
  4. BUPROPION HCL [Concomitant]
     Indication: DEPRESSION
  5. FOLIC ACID [Concomitant]
     Indication: VITAMIN SUPPLEMENTATION
  6. HUMIRA [Suspect]
     Indication: RHEUMATOID ARTHRITIS
     Dates: start: 20061001, end: 20100701
  7. LISINOPRIL [Concomitant]
     Indication: HYPERTENSION
  8. HYDROCHLOROTHIAZIDE [Concomitant]
     Indication: HYPERTENSION
  9. TREXALL [Concomitant]
     Indication: RHEUMATOID ARTHRITIS
  10. PRAVASTATIN [Concomitant]
     Indication: BLOOD CHOLESTEROL INCREASED
  11. HUMIRA [Suspect]
     Dates: start: 20101001
  12. METOPROLOL [Concomitant]
     Indication: HYPERTENSION
  13. ACIPHEX [Concomitant]
     Indication: GASTROOESOPHAGEAL REFLUX DISEASE

REACTIONS (7)
  - CONTUSION [None]
  - BURSITIS [None]
  - BACK PAIN [None]
  - FALL [None]
  - INTERVERTEBRAL DISC PROTRUSION [None]
  - MOBILITY DECREASED [None]
  - SPINAL FUSION SURGERY [None]
